FAERS Safety Report 18290648 (Version 1)
Quarter: 2020Q3

REPORT INFORMATION
  Report Type: Report from Study
  Country: BR (occurrence: BR)
  Receive Date: 20200921
  Receipt Date: 20200921
  Transmission Date: 20201103
  Serious: Yes (Death, Hospitalization, Other)
  Sender: FDA-Public Use
  Company Number: BR-B.I. PHARMACEUTICALS,INC./RIDGEFIELD-2020-BI-049102

PATIENT
  Sex: Female
  Weight: 58 kg

DRUGS (1)
  1. OFEV [Suspect]
     Active Substance: NINTEDANIB
     Indication: IDIOPATHIC PULMONARY FIBROSIS
     Dosage: DID NOT KNOW THE DOSAGE.
     Route: 048
     Dates: start: 202002, end: 20200720

REACTIONS (7)
  - COVID-19 [Fatal]
  - Lung disorder [Unknown]
  - Respiratory failure [Unknown]
  - Vomiting [Unknown]
  - Dysentery [Unknown]
  - Loss of consciousness [Unknown]
  - Malaise [Unknown]
